FAERS Safety Report 20050922 (Version 6)
Quarter: 2022Q2

REPORT INFORMATION
  Report Type: Report from Study
  Country: CH (occurrence: CH)
  Receive Date: 20211110
  Receipt Date: 20220411
  Transmission Date: 20220720
  Serious: Yes (Hospitalization)
  Sender: FDA-Public Use
  Company Number: CH-AMGEN-CHECT2021167422

PATIENT
  Age: 65 Year
  Sex: Male
  Weight: 72.7 kg

DRUGS (13)
  1. AMG-510 [Suspect]
     Active Substance: AMG-510
     Indication: K-ras gene mutation
     Dosage: 480 MILLIGRAM
     Route: 048
     Dates: start: 20210708
  2. AMG-510 [Suspect]
     Active Substance: AMG-510
     Indication: Non-small cell lung cancer stage IV
     Dosage: UNK
     Route: 048
     Dates: start: 20211110
  3. VITAMIN D3 [Concomitant]
     Active Substance: CHOLECALCIFEROL
     Dosage: 10 GTT DROPS
     Route: 048
  4. ASPIRIN [Concomitant]
     Active Substance: ASPIRIN
     Dosage: 100 MILLIGRAM
     Route: 048
     Dates: start: 2006
  5. CODEINE [Concomitant]
     Active Substance: CODEINE
     Dosage: 10 MILLIGRAM
     Route: 048
     Dates: start: 2021
  6. TORSEMIDE [Concomitant]
     Active Substance: TORSEMIDE
     Dosage: 15 MILLIGRAM
     Route: 048
     Dates: start: 2006
  7. EZETIMIBE\ROSUVASTATIN [Concomitant]
     Active Substance: EZETIMIBE\ROSUVASTATIN
     Dosage: 1 UNK
     Route: 048
     Dates: start: 2006
  8. BISOPROLOL [Concomitant]
     Active Substance: BISOPROLOL
     Dosage: 2.5 MILLIGRAM
     Route: 048
     Dates: start: 2006
  9. JANUMET XR [Concomitant]
     Active Substance: METFORMIN HYDROCHLORIDE\SITAGLIPTIN PHOSPHATE
     Dosage: 1 UNK
     Route: 048
     Dates: start: 2015
  10. JARDIANCE [Concomitant]
     Active Substance: EMPAGLIFLOZIN
     Dosage: 10 MILLIGRAM
     Route: 048
     Dates: start: 2015
  11. PERINDOPRIL [Concomitant]
     Active Substance: PERINDOPRIL
     Dosage: 2.5 MILLIGRAM
     Route: 048
     Dates: start: 2006
  12. ANDREAFOL [Concomitant]
     Dosage: 0.4 MILLIGRAM
     Route: 048
  13. MAGNESIUM [Concomitant]
     Active Substance: MAGNESIUM
     Dosage: 1 UNK
     Route: 048

REACTIONS (1)
  - Gastritis [Recovered/Resolved]

NARRATIVE: CASE EVENT DATE: 20211026
